FAERS Safety Report 21033086 (Version 2)
Quarter: 2023Q4

REPORT INFORMATION
  Report Type: Spontaneous
  Country: US (occurrence: US)
  Receive Date: 20220701
  Receipt Date: 20231006
  Transmission Date: 20240110
  Serious: Yes (Hospitalization, Other)
  Sender: FDA-Public Use
  Company Number: US-BAYER-2022A089277

PATIENT
  Age: 82 Year
  Sex: Female

DRUGS (2)
  1. ULTRAVIST [Suspect]
     Active Substance: IOPROMIDE
     Indication: Computerised tomogram
     Dosage: UNK, ONCE
     Dates: start: 20220624
  2. ULTRAVIST [Suspect]
     Active Substance: IOPROMIDE
     Indication: Pulmonary embolism

REACTIONS (5)
  - Anaphylactic reaction [None]
  - Pharyngeal swelling [None]
  - Lip swelling [None]
  - Dysphonia [None]
  - Urticaria [None]

NARRATIVE: CASE EVENT DATE: 20220624
